FAERS Safety Report 16917305 (Version 1)
Quarter: 2019Q4

REPORT INFORMATION
  Report Type: Spontaneous
  Country: ES (occurrence: ES)
  Receive Date: 20191015
  Receipt Date: 20191015
  Transmission Date: 20200122
  Serious: Yes (Life-Threatening)
  Sender: FDA-Public Use
  Company Number: ES-ZYDUS-041821

PATIENT
  Age: 46 Year
  Sex: Male

DRUGS (10)
  1. ACETYLSALICYLIC ACID [Suspect]
     Active Substance: ASPIRIN
     Indication: PROPHYLAXIS
     Route: 048
     Dates: start: 20180725, end: 20180814
  2. HYDRALAZINE/HYDRALAZINE HYDROCHLORIDE [Suspect]
     Active Substance: HYDRALAZINE HYDROCHLORIDE
     Indication: HYPERTENSION
     Route: 048
     Dates: start: 20180719, end: 20180814
  3. DOXAZOSIN [Suspect]
     Active Substance: DOXAZOSIN MESYLATE
     Indication: HYPERTENSION
     Route: 048
     Dates: start: 20180719, end: 20180814
  4. ENALAPRIL [Suspect]
     Active Substance: ENALAPRIL
     Indication: HYPERTENSION
     Route: 048
     Dates: start: 20180719, end: 20180814
  5. AMLODIPINE [Suspect]
     Active Substance: AMLODIPINE BESYLATE
     Indication: HYPERTENSION
     Route: 048
     Dates: start: 20180719, end: 20180814
  6. AMOXICILLIN AND CLAVULANATE POTASSIUM [Suspect]
     Active Substance: AMOXICILLIN\CLAVULANATE POTASSIUM
     Indication: INFECTION
     Route: 048
     Dates: start: 20180719, end: 20180831
  7. HYDROCHLOROTHIAZIDE. [Suspect]
     Active Substance: HYDROCHLOROTHIAZIDE
     Indication: HYPERTENSION
     Route: 048
     Dates: start: 20180725, end: 20180814
  8. BEMIPARIN [Concomitant]
     Active Substance: BEMIPARIN
     Indication: PROPHYLAXIS
     Route: 058
     Dates: start: 20180719, end: 20180731
  9. METAMIZOLE SODIUM [Concomitant]
     Active Substance: METAMIZOLE SODIUM
     Indication: PAIN
     Route: 058
     Dates: start: 20180719, end: 20180731
  10. PARACETAMOL [Concomitant]
     Active Substance: ACETAMINOPHEN
     Indication: PAIN
     Route: 048
     Dates: start: 20180719, end: 20180831

REACTIONS (1)
  - Toxic epidermal necrolysis [Recovered/Resolved]

NARRATIVE: CASE EVENT DATE: 20180814
